FAERS Safety Report 14755191 (Version 2)
Quarter: 2018Q2

REPORT INFORMATION
  Report Type: Spontaneous
  Country: PR (occurrence: US)
  Receive Date: 20180413
  Receipt Date: 20180426
  Transmission Date: 20180711
  Serious: Yes (Hospitalization)
  Sender: FDA-Public Use
  Company Number: PR-ABBVIE-18P-131-2318148-00

PATIENT
  Age: 3 Year
  Sex: Male
  Weight: 11.35 kg

DRUGS (1)
  1. SYNTHROID [Suspect]
     Active Substance: LEVOTHYROXINE SODIUM
     Indication: PRODUCT USED FOR UNKNOWN INDICATION
     Route: 048
     Dates: start: 20180405, end: 20180405

REACTIONS (10)
  - Thyroxine increased [Recovering/Resolving]
  - Fatigue [Recovered/Resolved]
  - Accidental exposure to product by child [Recovering/Resolving]
  - Vomiting [Recovered/Resolved]
  - Product packaging issue [Not Recovered/Not Resolved]
  - Dehydration [Recovering/Resolving]
  - Crying [Recovered/Resolved]
  - Thirst [Recovering/Resolving]
  - Psychomotor hyperactivity [Recovering/Resolving]
  - Tachycardia [Recovering/Resolving]

NARRATIVE: CASE EVENT DATE: 20180405
